FAERS Safety Report 4999839-3 (Version None)
Quarter: 2006Q2

REPORT INFORMATION
  Report Type: 
  Country: None (occurrence: None)
  Receive Date: 20060509
  Receipt Date: 20060428
  Transmission Date: 20061013
  Serious: Yes (Death, Life-Threatening, Hospitalization, Disabling)
  Sender: FDA-Public Use
  Company Number: 2005-01662

PATIENT
  Age: 68 Year
  Sex: Male
  Weight: 90 kg

DRUGS (1)
  1. VELCADE [Suspect]
     Indication: MULTIPLE MYELOMA
     Dosage: 2.60 MG, 2/WEEK, INTRAVENOUS
     Route: 042
     Dates: start: 20050630, end: 20050715

REACTIONS (24)
  - ANAEMIA [None]
  - ANOREXIA [None]
  - AORTIC ARTERIOSCLEROSIS [None]
  - AORTIC CALCIFICATION [None]
  - ATRIAL FIBRILLATION [None]
  - BLOOD ALBUMIN DECREASED [None]
  - BLOOD CALCIUM DECREASED [None]
  - BLOOD POTASSIUM INCREASED [None]
  - BRONCHOPNEUMONIA [None]
  - CARDIAC FAILURE [None]
  - CARDIOMYOPATHY [None]
  - CARDIOVASCULAR INSUFFICIENCY [None]
  - DILATATION VENTRICULAR [None]
  - HEPATIC FAILURE [None]
  - HEPATOMEGALY [None]
  - PNEUMONITIS [None]
  - PROTEIN TOTAL INCREASED [None]
  - PROTHROMBIN TIME PROLONGED [None]
  - PULMONARY CONGESTION [None]
  - RALES [None]
  - SPINAL OSTEOARTHRITIS [None]
  - SPLENOMEGALY [None]
  - TACHYARRHYTHMIA [None]
  - THROMBOCYTOPENIA [None]
